FAERS Safety Report 5508615-4 (Version None)
Quarter: 2007Q4

REPORT INFORMATION
  Report Type: 
  Country: None (occurrence: None)
  Receive Date: 20071107
  Receipt Date: 20071105
  Transmission Date: 20080405
  Serious: Yes (Hospitalization)
  Sender: FDA-Public Use
  Company Number: US-BRISTOL-MYERS SQUIBB COMPANY-13969456

PATIENT
  Age: 65 Year
  Sex: Female
  Weight: 73 kg

DRUGS (3)
  1. PROLIXIN DECANOATE [Suspect]
     Indication: EMOTIONAL DISORDER
     Dosage: 1DOSAGEFORM=1 INJECTION.
  2. LORAZEPAM [Interacting]
     Indication: EMOTIONAL DISORDER
     Dosage: 1DOSAGE FORM=1TABLET(0.5MG)
     Route: 048
     Dates: start: 20010101
  3. VISTARIL [Interacting]
     Route: 048

REACTIONS (5)
  - DEHYDRATION [None]
  - DRUG INTERACTION [None]
  - TENSION [None]
  - TREMOR [None]
  - VOMITING [None]
